FAERS Safety Report 4541328-4 (Version None)
Quarter: 2004Q4

REPORT INFORMATION
  Report Type: 
  Country: None (occurrence: None)
  Receive Date: 20041227
  Receipt Date: 20041213
  Transmission Date: 20050328
  Serious: Yes (Death)
  Sender: FDA-Public Use
  Company Number: CERZ-10726

PATIENT
  Age: 32 Year
  Sex: Male
  Weight: 102 kg

DRUGS (8)
  1. CEREZYME [Suspect]
     Indication: GAUCHER'S DISEASE
     Dosage: 9000 UNITS Q2WKS IV
     Route: 042
     Dates: start: 19940901, end: 20041123
  2. KEPPRA [Concomitant]
  3. ERGENYL CHRONO [Concomitant]
  4. ERGENYL - SLOW RELEASE [Concomitant]
  5. PIRACETAM [Concomitant]
  6. ANTELEPSIN [Concomitant]
  7. CALCIUM BETA [Concomitant]
  8. CONVULEX ^PROMONTA LUNDBECK^ [Concomitant]

REACTIONS (2)
  - GRAND MAL CONVULSION [None]
  - STATUS EPILEPTICUS [None]
